FAERS Safety Report 25524075 (Version 2)
Quarter: 2025Q3

REPORT INFORMATION
  Report Type: Spontaneous
  Country: RU (occurrence: RU)
  Receive Date: 20250707
  Receipt Date: 20250811
  Transmission Date: 20251021
  Serious: Yes (Other)
  Sender: ROCHE
  Company Number: RU-ROCHE-10000323808

PATIENT
  Age: 39 Year
  Sex: Male

DRUGS (7)
  1. ATEZOLIZUMAB [Suspect]
     Active Substance: ATEZOLIZUMAB
     Indication: Lung neoplasm malignant
     Route: 042
     Dates: start: 20221031, end: 20230508
  2. BEVACIZUMAB [Suspect]
     Active Substance: BEVACIZUMAB
     Indication: Lung neoplasm malignant
     Route: 042
     Dates: start: 20230712, end: 20231026
  3. BEVACIZUMAB [Suspect]
     Active Substance: BEVACIZUMAB
     Route: 042
     Dates: start: 20231114, end: 20240806
  4. ZOLEDRONIC ACID [Concomitant]
     Active Substance: ZOLEDRONIC ACID
     Dates: start: 20240216
  5. PEMBROLIZUMAB [Concomitant]
     Active Substance: PEMBROLIZUMAB
     Dates: start: 20241001
  6. PEMETREXED [Concomitant]
     Active Substance: PEMETREXED
     Dates: start: 20230712, end: 20231026
  7. CARBOPLATIN [Concomitant]
     Active Substance: CARBOPLATIN
     Dates: start: 20230712, end: 20231026

REACTIONS (16)
  - Metastases to central nervous system [Unknown]
  - Positron emission tomogram abnormal [Unknown]
  - Lymphadenopathy [Unknown]
  - K-ras gene mutation [Unknown]
  - Computerised tomogram pelvis abnormal [Unknown]
  - Radiation fibrosis - lung [Unknown]
  - Pleural effusion [Unknown]
  - Lung induration [Unknown]
  - Magnetic resonance imaging head abnormal [Unknown]
  - Lung cancer metastatic [Unknown]
  - Metastases to lymph nodes [Unknown]
  - Lymphostasis [Unknown]
  - Metastases to soft tissue [Unknown]
  - Metastases to bone [Unknown]
  - Isocitrate dehydrogenase gene mutation [Unknown]
  - TP53 gene mutation [Unknown]

NARRATIVE: CASE EVENT DATE: 20240209
